FAERS Safety Report 5750016-8 (Version None)
Quarter: 2008Q2

REPORT INFORMATION
  Report Type: 
  Country: None (occurrence: None)
  Receive Date: 20080527
  Receipt Date: 20080519
  Transmission Date: 20081010
  Serious: Yes (Life-Threatening, Hospitalization, Disabling)
  Sender: FDA-Public Use
  Company Number: GB-BOEHRINGER INGELHEIM GMBH, GERMANY-2008-UK-01042UK

PATIENT
  Age: 1 Day
  Sex: Male
  Weight: 0.5 kg

DRUGS (9)
  1. VIRAMUNE [Suspect]
     Indication: EXPOSURE TO COMMUNICABLE DISEASE
     Route: 048
     Dates: start: 20080310, end: 20080324
  2. LAMIVUDINE [Suspect]
     Indication: EXPOSURE TO COMMUNICABLE DISEASE
     Route: 042
     Dates: start: 20080310, end: 20080327
  3. ZIDOVUDINE [Suspect]
     Indication: EXPOSURE TO COMMUNICABLE DISEASE
     Route: 042
     Dates: start: 20080310, end: 20080327
  4. BENZYLPENICILLIN [Concomitant]
     Indication: INFECTION
     Route: 042
     Dates: start: 20080310, end: 20080312
  5. CEFTAZIDIME [Concomitant]
     Indication: INFECTION
     Route: 042
     Dates: start: 20080316, end: 20080318
  6. DALIVIT [Concomitant]
     Indication: MEDICAL DIET
     Route: 048
     Dates: start: 20080319
  7. FLUCONAZOLE [Concomitant]
     Indication: INFECTION
     Route: 042
     Dates: start: 20080315
  8. GENTAMICIN [Concomitant]
     Route: 042
     Dates: start: 20080310, end: 20080312
  9. VANCOMYCIN [Concomitant]
     Indication: INFECTION
     Route: 042
     Dates: start: 20080316, end: 20080321

REACTIONS (2)
  - PREMATURE BABY [None]
  - RENAL IMPAIRMENT [None]
